FAERS Safety Report 22626596 (Version 1)
Quarter: 2023Q2

REPORT INFORMATION
  Report Type: Report from Study
  Country: US (occurrence: US)
  Receive Date: 20230621
  Receipt Date: 20230621
  Transmission Date: 20230722
  Serious: No
  Sender: FDA-Public Use
  Company Number: US-BIOGEN-2023BI01210606

PATIENT
  Age: 80 Year
  Sex: Female
  Weight: 46.762 kg

DRUGS (16)
  1. ADUCANUMAB [Suspect]
     Active Substance: ADUCANUMAB
     Indication: Dementia Alzheimer^s type
     Route: 050
     Dates: start: 20221222, end: 20221222
  2. ADUCANUMAB [Suspect]
     Active Substance: ADUCANUMAB
     Route: 050
     Dates: start: 20230117, end: 20230117
  3. ADUCANUMAB [Suspect]
     Active Substance: ADUCANUMAB
     Route: 050
     Dates: start: 20230213, end: 20230213
  4. ADUCANUMAB [Suspect]
     Active Substance: ADUCANUMAB
     Route: 050
     Dates: start: 20230313, end: 20230313
  5. ADUCANUMAB [Suspect]
     Active Substance: ADUCANUMAB
     Route: 050
     Dates: start: 20230411, end: 20230411
  6. ADUCANUMAB [Suspect]
     Active Substance: ADUCANUMAB
     Route: 050
     Dates: start: 20230508, end: 20230508
  7. ADUCANUMAB [Suspect]
     Active Substance: ADUCANUMAB
     Route: 050
     Dates: start: 20230612, end: 20230612
  8. AMYVID [Suspect]
     Active Substance: FLORBETAPIR F-18
     Indication: Positron emission tomogram
     Route: 050
     Dates: start: 20221130, end: 20221130
  9. FLORQUINITAU [Suspect]
     Active Substance: FLORQUINITAU
     Indication: Positron emission tomogram
     Route: 050
     Dates: start: 20221207, end: 20221207
  10. DONEPEZIL [Concomitant]
     Active Substance: DONEPEZIL
     Indication: Dementia Alzheimer^s type
     Route: 050
     Dates: start: 20200410
  11. DONEPEZIL [Concomitant]
     Active Substance: DONEPEZIL
     Route: 050
     Dates: start: 20200309, end: 20200408
  12. TOLTERODINE [Concomitant]
     Active Substance: TOLTERODINE
     Indication: Hypertonic bladder
     Route: 050
     Dates: start: 20200506
  13. HYDROCHLOROTHIAZIDE [Concomitant]
     Active Substance: HYDROCHLOROTHIAZIDE
     Indication: Hypertension
     Route: 050
     Dates: start: 2019
  14. CETIRIZINE [Concomitant]
     Active Substance: CETIRIZINE HYDROCHLORIDE
     Indication: Rhinitis allergic
     Route: 050
     Dates: start: 20181005
  15. PROAIR HFA [Concomitant]
     Active Substance: ALBUTEROL SULFATE
     Indication: Asthma
     Dosage: 2 INHALATION
     Route: 050
     Dates: start: 20181005
  16. ADVAIR HFA [Concomitant]
     Active Substance: FLUTICASONE PROPIONATE\SALMETEROL XINAFOATE
     Indication: Asthma
     Dosage: 250/50, 1 PUFF
     Route: 050
     Dates: start: 20181005

REACTIONS (1)
  - Amyloid related imaging abnormality-oedema/effusion [Not Recovered/Not Resolved]

NARRATIVE: CASE EVENT DATE: 20230607
